FAERS Safety Report 5170603-8 (Version None)
Quarter: 2006Q4

REPORT INFORMATION
  Report Type: 
  Country: None (occurrence: None)
  Receive Date: 20061205
  Receipt Date: 20061120
  Transmission Date: 20070319
  Serious: Yes (Other)
  Sender: FDA-Public Use
  Company Number: 2006145757

PATIENT
  Age: 59 Year
  Sex: Female

DRUGS (7)
  1. LIPITOR [Suspect]
     Indication: HYPERCHOLESTEROLAEMIA
     Dosage: 10 MG (10 MG, 1 IN 1 D), ORAL
     Route: 048
     Dates: start: 20060501
  2. ATENOLOL [Concomitant]
  3. VALSARTAN [Concomitant]
  4. DIURETICS                 (DIURETICS) [Concomitant]
  5. ASPIRIN [Concomitant]
  6. LECITHIN                                  (LECITHIN) [Concomitant]
  7. GLUCOSAMINE                                        (GLUCOSAMINE) [Concomitant]

REACTIONS (5)
  - CHOLELITHIASIS [None]
  - DIZZINESS [None]
  - FLATULENCE [None]
  - HEADACHE [None]
  - NAUSEA [None]
